FAERS Safety Report 13710089 (Version 1)
Quarter: 2017Q3

REPORT INFORMATION
  Report Type: Spontaneous
  Country: US (occurrence: US)
  Receive Date: 20170703
  Receipt Date: 20170703
  Transmission Date: 20171127
  Serious: No
  Sender: FDA-Public Use
  Company Number: US-TEVA-732075ACC

PATIENT
  Age: 60 Year
  Sex: Female
  Weight: 91 kg

DRUGS (2)
  1. LIDOCAINE. [Suspect]
     Active Substance: LIDOCAINE
     Indication: BACK PAIN
     Dosage: DOSE: 1 PATCH
     Route: 061
     Dates: start: 20160725, end: 20170420
  2. PERMARIN [Concomitant]

REACTIONS (5)
  - Application site pruritus [Recovered/Resolved]
  - Back pain [Recovered/Resolved]
  - Application site pain [Recovered/Resolved]
  - Rash vesicular [Recovered/Resolved]
  - Application site rash [Recovered/Resolved]

NARRATIVE: CASE EVENT DATE: 20161228
